FAERS Safety Report 4847777-9 (Version None)
Quarter: 2005Q4

REPORT INFORMATION
  Report Type: 
  Country: None (occurrence: None)
  Receive Date: 20051207
  Receipt Date: 20051202
  Transmission Date: 20060501
  Serious: Yes (Hospitalization, Disabling)
  Sender: FDA-Public Use
  Company Number: AU-MERCK-0512AUS00132

PATIENT
  Age: 71 Year
  Sex: Male

DRUGS (1)
  1. VIOXX [Suspect]
     Route: 048
     Dates: start: 20020501, end: 20041001

REACTIONS (3)
  - CARDIOVASCULAR DISORDER [None]
  - PULMONARY EMBOLISM [None]
  - PULMONARY THROMBOSIS [None]
